FAERS Safety Report 17408396 (Version 3)
Quarter: 2021Q2

REPORT INFORMATION
  Report Type: Spontaneous
  Country: PL (occurrence: PL)
  Receive Date: 20200212
  Receipt Date: 20210615
  Transmission Date: 20210716
  Serious: Yes (Death, Other)
  Sender: FDA-Public Use
  Company Number: NVSC2020PL035984

PATIENT
  Age: 43 Year
  Sex: Male

DRUGS (7)
  1. DAUNORUBICIN [Suspect]
     Active Substance: DAUNORUBICIN
     Indication: ACUTE MYELOID LEUKAEMIA
     Dosage: UNK
     Route: 065
  2. CLADRIBINE. [Suspect]
     Active Substance: CLADRIBINE
     Indication: ACUTE MYELOID LEUKAEMIA
     Dosage: UNK
     Route: 065
  3. METHOTREXATE. [Suspect]
     Active Substance: METHOTREXATE
     Indication: PROPHYLAXIS AGAINST GRAFT VERSUS HOST DISEASE
     Dosage: UNK
     Route: 065
  4. CYCLOPHOSPHAMIDE. [Suspect]
     Active Substance: CYCLOPHOSPHAMIDE
     Indication: PRODUCT USED FOR UNKNOWN INDICATION
     Dosage: 120 MG/G
     Route: 065
  5. CYCLOSPORINE. [Suspect]
     Active Substance: CYCLOSPORINE
     Indication: PROPHYLAXIS AGAINST GRAFT VERSUS HOST DISEASE
     Dosage: UNK
     Route: 065
  6. BUSULFAN. [Suspect]
     Active Substance: BUSULFAN
     Indication: PRODUCT USED FOR UNKNOWN INDICATION
     Dosage: UNK
     Route: 065
  7. CYTARABINE. [Suspect]
     Active Substance: CYTARABINE
     Indication: ACUTE MYELOID LEUKAEMIA
     Dosage: UNK
     Route: 065

REACTIONS (17)
  - Hypovolaemic shock [Fatal]
  - Cardiovascular insufficiency [Unknown]
  - Abdominal pain [Unknown]
  - Condition aggravated [Unknown]
  - Acute graft versus host disease [Not Recovered/Not Resolved]
  - Off label use [Unknown]
  - Pseudomonas infection [Not Recovered/Not Resolved]
  - Pulmonary oedema [Fatal]
  - Agranulocytosis [Recovered/Resolved]
  - Multiple organ dysfunction syndrome [Fatal]
  - Renal failure [Fatal]
  - Pyrexia [Unknown]
  - Diarrhoea [Unknown]
  - Respiratory failure [Fatal]
  - Jaundice [Unknown]
  - Fluid retention [Unknown]
  - Product use in unapproved indication [Unknown]
